FAERS Safety Report 24357344 (Version 4)
Quarter: 2024Q4

REPORT INFORMATION
  Report Type: Spontaneous
  Country: TW (occurrence: TW)
  Receive Date: 20240924
  Receipt Date: 20241126
  Transmission Date: 20250114
  Serious: No
  Sender: SANOFI AVENTIS
  Company Number: TW-SANOFI-02211988

PATIENT
  Age: 80 Year
  Sex: Male

DRUGS (2)
  1. PLAVIX [Suspect]
     Active Substance: CLOPIDOGREL BISULFATE
     Indication: Hyperlipidaemia
     Dosage: 75 MG
     Route: 048
     Dates: start: 2005, end: 20240629
  2. PLAVIX [Suspect]
     Active Substance: CLOPIDOGREL BISULFATE
     Dosage: 75 MG
     Route: 048
     Dates: start: 202410

REACTIONS (4)
  - Lipoma [Not Recovered/Not Resolved]
  - Head injury [Recovered/Resolved]
  - Haemangioma [Not Recovered/Not Resolved]
  - Haematuria [Not Recovered/Not Resolved]

NARRATIVE: CASE EVENT DATE: 20240101
